FAERS Safety Report 25727941 (Version 1)
Quarter: 2025Q3

REPORT INFORMATION
  Report Type: Spontaneous
  Country: US (occurrence: None)
  Receive Date: 20250826
  Receipt Date: 20250826
  Transmission Date: 20251021
  Serious: Yes (Hospitalization)
  Sender: FDA-CTU
  Company Number: None

PATIENT
  Sex: Male

DRUGS (1)
  1. CEFTRIAXONE [Suspect]
     Active Substance: CEFTRIAXONE

REACTIONS (6)
  - Infusion related reaction [None]
  - Cough [None]
  - Vomiting [None]
  - Dyspnoea [None]
  - Rash [None]
  - Swollen tongue [None]

NARRATIVE: CASE EVENT DATE: 20241004
